FAERS Safety Report 9796561 (Version 2)
Quarter: 2014Q1

REPORT INFORMATION
  Report Type: Report from Study
  Country: JP (occurrence: JP)
  Receive Date: 20140103
  Receipt Date: 20140317
  Transmission Date: 20141002
  Serious: Yes (Death)
  Sender: FDA-Public Use
  Company Number: JP-BAYER-2013-157475

PATIENT
  Age: 75 Year
  Sex: Male
  Weight: 52 kg

DRUGS (9)
  1. STIVARGA [Suspect]
     Indication: COLON CANCER
     Dosage: 160 MG, QD (3 WEEKS ON AND 1 WEEK OFF)
     Route: 048
     Dates: start: 20131113, end: 20131215
  2. HIRUDOID [Concomitant]
     Indication: DRUG TOXICITY PROPHYLAXIS
     Dosage: UNK
     Route: 061
     Dates: end: 20131220
  3. MORPHINE HYDROCHLORIDE [Concomitant]
     Dosage: 60 MG, DAILY
     Route: 048
     Dates: end: 20131220
  4. RINDERON [Concomitant]
     Dosage: 0.5 MG, DAILY
     Route: 048
     Dates: end: 20131220
  5. MAGNESIUM OXIDE [Concomitant]
     Dosage: 1.5 MG, DAILY
     Route: 048
     Dates: end: 20131220
  6. NAUZELIN [Concomitant]
     Dosage: 10 MG, DAILY
     Route: 048
     Dates: end: 20131220
  7. HERBESSER [Concomitant]
     Dosage: 90 MG, DAILY
     Route: 048
     Dates: end: 20131220
  8. NICORANDIL [Concomitant]
     Dosage: 15 MG, DAILY
     Route: 048
     Dates: end: 20131220
  9. METASTRON [STRONTIUM CHLORIDE] [Concomitant]
     Dosage: 104 MBQ, DAILY
     Dates: start: 20131115, end: 20131115

REACTIONS (3)
  - Hepatic failure [Fatal]
  - Renal failure acute [Fatal]
  - Colon cancer [Fatal]
